FAERS Safety Report 9758820 (Version 1)
Quarter: 2013Q4

REPORT INFORMATION
  Report Type: Spontaneous
  Country: US (occurrence: None)
  Receive Date: 20131216
  Receipt Date: 20131216
  Transmission Date: 20140711
  Serious: No
  Sender: FDA-Public Use
  Company Number: TH-2013-00169

PATIENT
  Age: 51 Year
  Sex: Male

DRUGS (1)
  1. EGRIFTA [Suspect]
     Indication: LIPODYSTROPHY ACQUIRED
     Dosage: 1 IN 1 D? ? ? ?

REACTIONS (5)
  - Heart rate increased [None]
  - Aphthous stomatitis [None]
  - Mood altered [None]
  - Arthralgia [None]
  - Myalgia [None]
